FAERS Safety Report 21279413 (Version 1)
Quarter: 2022Q3

REPORT INFORMATION
  Report Type: Spontaneous
  Country: CA (occurrence: CA)
  Receive Date: 20220901
  Receipt Date: 20220901
  Transmission Date: 20221027
  Serious: Yes (Hospitalization)
  Sender: FDA-Public Use
  Company Number: CA-TAKEDA-2022TUS059611

PATIENT
  Sex: Female

DRUGS (1)
  1. GAMMAGARD LIQUID [Suspect]
     Active Substance: HUMAN IMMUNOGLOBULIN G
     Indication: Chronic lymphocytic leukaemia
     Route: 065

REACTIONS (5)
  - Hospitalisation [Unknown]
  - Anxiety [Unknown]
  - Off label use [Unknown]
  - Product storage error [Unknown]
  - Inappropriate schedule of product administration [Unknown]
